FAERS Safety Report 25616616 (Version 1)
Quarter: 2025Q3

REPORT INFORMATION
  Report Type: Spontaneous
  Country: US (occurrence: US)
  Receive Date: 20250729
  Receipt Date: 20250729
  Transmission Date: 20251020
  Serious: Yes (Hospitalization)
  Sender: CHATTEM
  Company Number: US-OPELLA-2025OHG022585

PATIENT
  Age: 81 Year
  Sex: Male

DRUGS (1)
  1. ASPERCREME WITH LIDOCAINE NO-MESS APPLICATOR [Suspect]
     Active Substance: LIDOCAINE HYDROCHLORIDE
     Indication: Product used for unknown indication
     Route: 061

REACTIONS (4)
  - Fall [Unknown]
  - Concussion [Unknown]
  - Product residue present [Unknown]
  - Product physical consistency issue [Unknown]
